FAERS Safety Report 7871054-5 (Version None)
Quarter: 2011Q4

REPORT INFORMATION
  Report Type: 
  Country: None (occurrence: None)
  Receive Date: 20111029
  Receipt Date: 20110224
  Transmission Date: 20120403
  Serious: No
  Sender: FDA-Public Use
  Company Number: US-AMGEN-USASP2011010745

PATIENT
  Age: 35 Year
  Sex: Female

DRUGS (2)
  1. TREXALL [Concomitant]
     Dosage: 1 MG, UNK
     Dates: start: 20100801
  2. ENBREL [Suspect]
     Indication: PSORIATIC ARTHROPATHY
     Dosage: 50 MG, QWK
     Dates: start: 20101001

REACTIONS (5)
  - INJECTION SITE WARMTH [None]
  - MUSCULOSKELETAL CHEST PAIN [None]
  - INJECTION SITE ERYTHEMA [None]
  - BACK PAIN [None]
  - INJECTION SITE SWELLING [None]
